FAERS Safety Report 5015197-2 (Version None)
Quarter: 2006Q2

REPORT INFORMATION
  Report Type: 
  Country: None (occurrence: None)
  Receive Date: 20060425
  Receipt Date: 20060309
  Transmission Date: 20061013
  Serious: No
  Sender: FDA-Public Use
  Company Number: 222918

PATIENT
  Age: 58 Year
  Sex: Female
  Weight: 50.8 kg

DRUGS (1)
  1. XOLAIR [Suspect]
     Indication: ASTHMA
     Dosage: 150 MG, Q4W, SUBCUTANEOUS
     Route: 058
     Dates: start: 20050822, end: 20060309

REACTIONS (2)
  - HYPERSENSITIVITY [None]
  - MIGRAINE [None]
